FAERS Safety Report 4764280-5 (Version None)
Quarter: 2005Q3

REPORT INFORMATION
  Report Type: 
  Country: None (occurrence: None)
  Receive Date: 20050909
  Receipt Date: 20050901
  Transmission Date: 20060218
  Serious: Yes (Other)
  Sender: FDA-Public Use
  Company Number: MX-BOEHRINGER INGELHEIM PHARMACEUTICALS, INC.-2005-BP-15407MX

PATIENT
  Age: 75 Year
  Sex: Male

DRUGS (2)
  1. SECOTEX CAPSULES 0.4MG [Suspect]
     Indication: BENIGN PROSTATIC HYPERPLASIA
     Route: 048
     Dates: start: 20041112
  2. SECOTEX CAPSULES 0.4MG [Suspect]
     Indication: URINARY RETENTION
     Route: 048
     Dates: start: 20041112

REACTIONS (2)
  - HAEMATURIA [None]
  - PROSTATE CANCER [None]
